FAERS Safety Report 6182393-0 (Version None)
Quarter: 2009Q2

REPORT INFORMATION
  Report Type: 
  Country: None (occurrence: None)
  Receive Date: 20090505
  Receipt Date: 20090505
  Transmission Date: 20091009
  Serious: Yes (Hospitalization)
  Sender: FDA-Public Use
  Company Number: None

PATIENT
  Age: 81 Year
  Sex: Male
  Weight: 78 kg

DRUGS (2)
  1. FLUORESCEIN [Suspect]
     Indication: IMAGING PROCEDURE
     Dosage: ONCE IV
     Route: 042
     Dates: start: 20090416, end: 20090416
  2. FLUORESCEIN [Suspect]
     Indication: OPHTHALMOLOGICAL EXAMINATION
     Dosage: ONCE IV
     Route: 042
     Dates: start: 20090416, end: 20090416

REACTIONS (11)
  - ANAPHYLACTIC REACTION [None]
  - ANGIOEDEMA [None]
  - BURNING SENSATION [None]
  - CARDIO-RESPIRATORY ARREST [None]
  - CONFUSIONAL STATE [None]
  - CONSCIOUSNESS FLUCTUATING [None]
  - DYSPNOEA [None]
  - HYPERHIDROSIS [None]
  - INFUSION RELATED REACTION [None]
  - MENTAL STATUS CHANGES [None]
  - RESPIRATORY DISORDER [None]
